FAERS Safety Report 9315848 (Version 2)
Quarter: 2013Q2

REPORT INFORMATION
  Report Type: Spontaneous
  Country: CN (occurrence: CN)
  Receive Date: 20130529
  Receipt Date: 20130610
  Transmission Date: 20140414
  Serious: Yes (Hospitalization)
  Sender: FDA-Public Use
  Company Number: CN-009507513-1305CHN014017

PATIENT
  Age: 80 Year
  Sex: Male
  Weight: 70 kg

DRUGS (1)
  1. TIENAM [Suspect]
     Indication: BACTERIAL TEST POSITIVE
     Dosage: 1 G, TID
     Route: 041
     Dates: start: 20120623, end: 20120625

REACTIONS (2)
  - Neutrophil percentage decreased [Unknown]
  - White blood cell count decreased [Recovered/Resolved]
